FAERS Safety Report 23944170 (Version 1)
Quarter: 2024Q2

REPORT INFORMATION
  Report Type: Spontaneous
  Country: US (occurrence: US)
  Receive Date: 20240606
  Receipt Date: 20240606
  Transmission Date: 20240716
  Serious: Yes (Other)
  Sender: FDA-Public Use
  Company Number: US-ALKEM LABORATORIES LIMITED-US-ALKEM-2024-11621

PATIENT
  Sex: Female

DRUGS (1)
  1. GABAPENTIN [Suspect]
     Active Substance: GABAPENTIN
     Indication: Pain
     Dosage: UNK
     Route: 048

REACTIONS (18)
  - Skin ulcer [Unknown]
  - Skin laceration [Unknown]
  - Suicidal ideation [Unknown]
  - Anxiety [Unknown]
  - Panic attack [Unknown]
  - Depression [Unknown]
  - Insomnia [Unknown]
  - Agitation [Unknown]
  - Irritability [Unknown]
  - Nausea [Unknown]
  - Walking disability [Unknown]
  - Anger [Unknown]
  - Hypoaesthesia [Unknown]
  - Dyspnoea [Unknown]
  - Restlessness [Unknown]
  - Dizziness [Unknown]
  - Feeling abnormal [Unknown]
  - Drug ineffective [Unknown]
